FAERS Safety Report 9352993 (Version 2)
Quarter: 2013Q3

REPORT INFORMATION
  Report Type: Spontaneous
  Country: JP (occurrence: JP)
  Receive Date: 20130618
  Receipt Date: 20130712
  Transmission Date: 20140515
  Serious: No
  Sender: FDA-Public Use
  Company Number: JP-MERCK-1306JPN007557

PATIENT
  Age: 35 Year
  Sex: Male

DRUGS (5)
  1. REFLEX [Suspect]
     Indication: DEPRESSION
     Dosage: 15 MG, QD
     Route: 048
     Dates: start: 20130509, end: 20130519
  2. DULOXETINE HYDROCHLORIDE [Concomitant]
     Dosage: 60 MG/DAY
     Route: 048
     Dates: start: 20130408
  3. BROMAZEPAM [Concomitant]
     Dosage: UNK MG, UNK
     Route: 048
     Dates: start: 20130325
  4. QUAZEPAM [Concomitant]
     Indication: PRODUCT USED FOR UNKNOWN INDICATION
     Dosage: UNK MG, UNK
     Route: 048
     Dates: start: 20130411
  5. SENNOSIDES [Concomitant]
     Dosage: DAILY DOSE: 24 MG
     Route: 048
     Dates: start: 20130411

REACTIONS (3)
  - Red blood cell count decreased [Recovered/Resolved]
  - Haemoglobin decreased [Recovered/Resolved]
  - White blood cell count decreased [Recovered/Resolved]
